FAERS Safety Report 4415296-X (Version None)
Quarter: 2004Q3

REPORT INFORMATION
  Report Type: 
  Country: None (occurrence: None)
  Receive Date: 20040730
  Receipt Date: 20040719
  Transmission Date: 20050211
  Serious: Yes (Other)
  Sender: FDA-Public Use
  Company Number: 207926

PATIENT
  Age: 55 Year
  Sex: Female

DRUGS (10)
  1. MABTHERA (RITUXIMAB) CONC FOR SOLUTION FOR INFUSION [Suspect]
     Indication: NON-HODGKIN'S LYMPHOMA
     Dosage: 375 MG/M2, INTRAVENOUS
     Route: 042
  2. DOXORUBICIN HYDROCHLORIDE [Concomitant]
  3. CYCLOPHOSPHAMIDE [Concomitant]
  4. VINDESINE (VINDESINE) [Concomitant]
  5. BLEOYCIN (BLEOMYCIN SULFATE) [Concomitant]
  6. CARMUSTINE [Concomitant]
  7. ETOPOSIDE [Concomitant]
  8. CYTARABINE [Concomitant]
  9. MELPHALAN (MELPHALAN) [Concomitant]
  10. STEM CELL TRANSPLANT (STEM CELLS) [Concomitant]

REACTIONS (3)
  - FEBRILE NEUTROPENIA [None]
  - INFECTION [None]
  - STEM CELL TRANSPLANT [None]
